FAERS Safety Report 24433089 (Version 1)
Quarter: 2024Q4

REPORT INFORMATION
  Report Type: Spontaneous
  Country: US (occurrence: US)
  Receive Date: 20241014
  Receipt Date: 20241014
  Transmission Date: 20250115
  Serious: Yes (Other)
  Sender: GLAND PHARMA LTD
  Company Number: US-GLANDPHARMA-US-2024GLNSPO00839

PATIENT
  Age: 15 Year
  Sex: Female

DRUGS (1)
  1. THIOTEPA [Suspect]
     Active Substance: THIOTEPA
     Indication: Prostate cancer
     Route: 065

REACTIONS (5)
  - Deafness [Unknown]
  - Mobility decreased [Unknown]
  - Illiteracy [Unknown]
  - Cognitive disorder [Unknown]
  - Product use in unapproved indication [Unknown]
